FAERS Safety Report 5914117-3 (Version None)
Quarter: 2008Q4

REPORT INFORMATION
  Report Type: 
  Country: None (occurrence: None)
  Receive Date: 20081009
  Receipt Date: 20080929
  Transmission Date: 20090506
  Serious: Yes (Death)
  Sender: FDA-Public Use
  Company Number: JP-SANOFI-SYNTHELABO-A01200811121

PATIENT
  Sex: Male

DRUGS (15)
  1. LENDORMIN [Suspect]
     Indication: INSOMNIA
     Route: 048
     Dates: start: 20060601, end: 20080301
  2. LENDORMIN [Suspect]
     Indication: DEPRESSION
     Route: 048
     Dates: start: 20060601, end: 20080301
  3. SOLANAX [Suspect]
     Indication: INSOMNIA
     Route: 048
     Dates: start: 20060601, end: 20080301
  4. SOLANAX [Suspect]
     Indication: DEPRESSION
     Route: 048
     Dates: start: 20060601, end: 20080301
  5. HARNAL [Suspect]
     Indication: DRUG USE FOR UNKNOWN INDICATION
     Route: 048
  6. MYSLEE [Suspect]
     Indication: INSOMNIA
     Route: 048
     Dates: start: 20060601, end: 20080301
  7. MYSLEE [Suspect]
     Indication: DEPRESSION
     Route: 048
     Dates: start: 20060601, end: 20080301
  8. ZOLOFT [Suspect]
     Indication: INSOMNIA
     Route: 048
     Dates: start: 20071001, end: 20080301
  9. ZOLOFT [Suspect]
     Indication: DEPRESSION
     Route: 048
     Dates: start: 20071001, end: 20080301
  10. DEPAS [Suspect]
     Indication: INSOMNIA
     Route: 048
     Dates: start: 20060601, end: 20080301
  11. DEPAS [Suspect]
     Indication: DEPRESSION
     Route: 048
     Dates: start: 20060601, end: 20080301
  12. TETRAMIDE [Suspect]
     Indication: INSOMNIA
     Route: 048
     Dates: start: 20060601, end: 20080301
  13. TETRAMIDE [Suspect]
     Indication: DEPRESSION
     Route: 048
     Dates: start: 20060601, end: 20080301
  14. TOLEDOMIN [Suspect]
     Indication: INSOMNIA
     Route: 048
     Dates: start: 20060601, end: 20080301
  15. TOLEDOMIN [Suspect]
     Indication: DEPRESSION
     Route: 048
     Dates: start: 20060601, end: 20080301

REACTIONS (3)
  - ENCEPHALOPATHY [None]
  - HAEMORRHAGE [None]
  - HEPATITIS FULMINANT [None]
